FAERS Safety Report 9858880 (Version 6)
Quarter: 2014Q4

REPORT INFORMATION
  Report Type: Spontaneous
  Country: US (occurrence: None)
  Receive Date: 20140129
  Receipt Date: 20141015
  Transmission Date: 20150529
  Serious: Yes (Hospitalization)
  Sender: FDA-Public Use
  Company Number: 2014-US-000482

PATIENT
  Age: 63 Year
  Sex: Female
  Weight: 111.1 kg

DRUGS (11)
  1. XYREM [Suspect]
     Active Substance: SODIUM OXYBATE
     Indication: SOMNOLENCE
     Route: 048
     Dates: start: 201310, end: 20140105
  2. VALSARTAN/HYDROCHLOROTHIAZIDE (HYDROCHLOROTHIAZOIDE, VALSARTAN) [Concomitant]
  3. VICODIN [Concomitant]
     Active Substance: ACETAMINOPHEN\HYDROCODONE BITARTRATE
  4. CELEBREX [Concomitant]
     Active Substance: CELECOXIB
  5. NUVIGIL [Concomitant]
     Active Substance: ARMODAFINIL
  6. METHYLPHENIDATE (METHYLOPHENIDATE HYDROCHLORIDE) [Concomitant]
  7. OXYCODONE (OXYCODONE HYDROCHLORIDE) (OXYCODONE) [Concomitant]
     Active Substance: OXYCODONE
  8. XYREM [Suspect]
     Active Substance: SODIUM OXYBATE
     Indication: NARCOLEPSY
     Route: 048
     Dates: start: 201310, end: 20140105
  9. OMEPRAZOLE (OMEPRAZOLE) [Concomitant]
     Active Substance: OMEPRAZOLE
  10. BYSTOLIC (NEBIVOLOL HYDROCHLORIDE) [Concomitant]
  11. PRAMIPEXOLE (PRAMIPEXOLE DIHYDROCHLORIDE) [Concomitant]

REACTIONS (12)
  - Cellulitis [None]
  - Blood pressure increased [None]
  - Procedural pain [None]
  - Post procedural complication [None]
  - Weight increased [None]
  - Radical mastectomy [None]
  - Hypokinesia [None]
  - Lymphoedema [None]
  - Neuropathy peripheral [None]
  - Breast cancer [None]
  - White blood cell count decreased [None]
  - Nausea [None]

NARRATIVE: CASE EVENT DATE: 20131220
